FAERS Safety Report 9196469 (Version 1)
Quarter: 2013Q1

REPORT INFORMATION
  Report Type: Spontaneous
  Country: US (occurrence: None)
  Receive Date: 20120709
  Receipt Date: 20120709
  Transmission Date: 20140127
  Serious: Yes (Other)
  Sender: FDA-Public Use
  Company Number: PHHY2011US51356

PATIENT
  Age: 56 Year
  Sex: Male

DRUGS (1)
  1. GLEEVEC [Suspect]
     Indication: HYPEREOSINOPHILIC SYNDROME
     Route: 048
     Dates: start: 201007, end: 201105

REACTIONS (1)
  - Eosinophil count increased [None]
